FAERS Safety Report 19727771 (Version 1)
Quarter: 2021Q3

REPORT INFORMATION
  Report Type: Spontaneous
  Country: US (occurrence: US)
  Receive Date: 20210820
  Receipt Date: 20210820
  Transmission Date: 20211014
  Serious: No
  Sender: FDA-Public Use
  Company Number: None

PATIENT
  Age: 68 Year
  Sex: Male
  Weight: 81 kg

DRUGS (12)
  1. ABIRATERONE. [Suspect]
     Active Substance: ABIRATERONE ACETATE
     Indication: PROSTATE CANCER
     Route: 048
     Dates: start: 20210212
  2. LUPRON [Concomitant]
     Active Substance: LEUPROLIDE ACETATE
  3. PREDNSIONE [Concomitant]
     Active Substance: PREDNISONE
  4. ACETAMINOPHEN. [Concomitant]
     Active Substance: ACETAMINOPHEN
  5. ALCOHOL. [Concomitant]
     Active Substance: ALCOHOL
  6. TRESIBA [Concomitant]
     Active Substance: INSULIN DEGLUDEC
  7. CRESTOR [Concomitant]
     Active Substance: ROSUVASTATIN CALCIUM
  8. TAMSULOSIN [Concomitant]
     Active Substance: TAMSULOSIN
  9. CASODEX [Concomitant]
     Active Substance: BICALUTAMIDE
  10. TRIAMCINOLONE [Concomitant]
     Active Substance: TRIAMCINOLONE
  11. TRULICITY [Concomitant]
     Active Substance: DULAGLUTIDE
  12. VOLTAREN [Concomitant]
     Active Substance: DICLOFENAC SODIUM

REACTIONS (3)
  - Burning sensation [None]
  - Discomfort [None]
  - Fatigue [None]

NARRATIVE: CASE EVENT DATE: 20210820
